FAERS Safety Report 10768335 (Version 1)
Quarter: 2015Q1

REPORT INFORMATION
  Report Type: Spontaneous
  Country: US (occurrence: US)
  Receive Date: 20150206
  Receipt Date: 20150206
  Transmission Date: 20150721
  Serious: Yes (Other)
  Sender: FDA-Public Use
  Company Number: US-ACCORD-028446

PATIENT
  Age: 69 Year
  Sex: Female

DRUGS (2)
  1. CYTARABINE. [Interacting]
     Active Substance: CYTARABINE
     Indication: METASTASES TO MENINGES
  2. TOPOTECAN/TOPOTECAN HYDROCHLORIDE [Suspect]
     Active Substance: TOPOTECAN\TOPOTECAN HYDROCHLORIDE
     Indication: METASTASES TO MENINGES
     Dosage: ROUTE OF ADMINISTRATION: INTRAVENTRICULAR

REACTIONS (3)
  - Drug interaction [Unknown]
  - Cerebral cyst [Recovered/Resolved]
  - Product use issue [Unknown]

NARRATIVE: CASE EVENT DATE: 201401
